FAERS Safety Report 10240939 (Version 1)
Quarter: 2014Q2

REPORT INFORMATION
  Report Type: Report from Study
  Country: CA (occurrence: CA)
  Receive Date: 20140617
  Receipt Date: 20140617
  Transmission Date: 20141212
  Serious: Yes (Life-Threatening)
  Sender: FDA-Public Use
  Company Number: CA-JNJFOC-20140609028

PATIENT
  Age: 86 Year
  Sex: Female
  Weight: 49.9 kg

DRUGS (4)
  1. REMICADE [Suspect]
     Indication: CROHN^S DISEASE
     Dosage: 2 LOADING DOSE. INFUSED 3 VIALS.
     Route: 042
     Dates: start: 20140612
  2. REMICADE [Suspect]
     Indication: CROHN^S DISEASE
     Route: 042
     Dates: start: 201405
  3. VENTOLIN [Concomitant]
     Route: 065
  4. PULMICORT [Concomitant]
     Route: 065

REACTIONS (6)
  - Respiratory rate increased [Recovered/Resolved]
  - Dyspnoea [Recovered/Resolved]
  - Flushing [Recovered/Resolved]
  - Feeling cold [Recovered/Resolved]
  - Infusion related reaction [Recovered/Resolved]
  - Blood pressure increased [Recovered/Resolved]
